FAERS Safety Report 21102642 (Version 1)
Quarter: 2022Q3

REPORT INFORMATION
  Report Type: Spontaneous
  Country: US (occurrence: US)
  Receive Date: 20220719
  Receipt Date: 20220719
  Transmission Date: 20221027
  Serious: Yes (Hospitalization, Other)
  Sender: FDA-Public Use
  Company Number: US-PCCINC-2022-PEL-000358

PATIENT

DRUGS (27)
  1. GABLOFEN [Suspect]
     Active Substance: BACLOFEN
     Indication: Dystonia
     Dosage: 437.9 MICROGRAM/DAY
     Route: 037
     Dates: start: 201609
  2. GABLOFEN [Suspect]
     Active Substance: BACLOFEN
     Indication: Craniocerebral injury
     Dosage: 745.2 MICROGRAM/DAY
     Route: 037
     Dates: start: 2018
  3. GABLOFEN [Suspect]
     Active Substance: BACLOFEN
     Dosage: 819.72 MICROGRAM/DAY
     Route: 037
     Dates: start: 201812
  4. GABLOFEN [Suspect]
     Active Substance: BACLOFEN
     Dosage: 1100 MICROGRAM/DAY
     Route: 037
     Dates: start: 202001
  5. GABLOFEN [Suspect]
     Active Substance: BACLOFEN
     Dosage: 100 MICROGRAM/DAY
     Route: 037
     Dates: start: 202003
  6. GABLOFEN [Suspect]
     Active Substance: BACLOFEN
     Dosage: 275 MICROGRAM/DAY
     Route: 037
     Dates: start: 202003
  7. GABLOFEN [Suspect]
     Active Substance: BACLOFEN
     Dosage: 375 MICROGRAM/DAY
     Route: 037
     Dates: start: 202004
  8. GABLOFEN [Suspect]
     Active Substance: BACLOFEN
     Dosage: 230.2 MICROGRAM/DAY
     Route: 037
     Dates: start: 202007
  9. GABLOFEN [Suspect]
     Active Substance: BACLOFEN
     Dosage: 253.2 MICROGRAM/DAY
     Route: 037
     Dates: start: 202007
  10. GABLOFEN [Suspect]
     Active Substance: BACLOFEN
     Dosage: 278.1 MICROGRAM/DAY
     Route: 037
     Dates: start: 202007
  11. GABLOFEN [Suspect]
     Active Substance: BACLOFEN
     Dosage: 178.2 MICROGRAM/DAY
     Route: 037
     Dates: start: 202008
  12. GABLOFEN [Suspect]
     Active Substance: BACLOFEN
     Dosage: 150 MICROGRAM/DAY
     Route: 037
     Dates: start: 202010
  13. CARBIDOPA\LEVODOPA [Suspect]
     Active Substance: CARBIDOPA\LEVODOPA
     Indication: Dystonia
     Dosage: UNK
     Route: 065
     Dates: start: 201606
  14. QUETIAPINE [Suspect]
     Active Substance: QUETIAPINE
     Indication: Bipolar disorder
     Dosage: UNK
     Route: 065
  15. LITHIUM [Suspect]
     Active Substance: LITHIUM
     Indication: Bipolar disorder
     Dosage: UNK
     Route: 065
  16. BACLOFEN [Concomitant]
     Active Substance: BACLOFEN
     Indication: Dystonia
     Dosage: UNK
     Route: 048
     Dates: start: 201606
  17. BOTULINUM TOXIN NOS [Concomitant]
     Active Substance: BOTULINUM TOXIN NOS
     Indication: Dystonia
     Dosage: UNK
     Route: 065
     Dates: start: 201606
  18. LAMOTRIGINE [Concomitant]
     Active Substance: LAMOTRIGINE
     Indication: Bipolar disorder
     Dosage: UNK
     Route: 065
  19. LAMOTRIGINE [Concomitant]
     Active Substance: LAMOTRIGINE
     Indication: Mood altered
     Dosage: 150 MILLIGRAM/ BID
     Route: 065
     Dates: start: 202006
  20. DIAZEPAM [Concomitant]
     Active Substance: DIAZEPAM
     Indication: Dystonia
     Dosage: 1 MILLIGRAM/BID
     Route: 065
     Dates: start: 202006
  21. DIAZEPAM [Concomitant]
     Active Substance: DIAZEPAM
     Indication: Mood altered
  22. VALPROIC ACID [Concomitant]
     Active Substance: VALPROIC ACID
     Indication: Dystonia
     Dosage: 10 MILLIGRAM/BID
     Route: 065
     Dates: start: 202006
  23. VALPROIC ACID [Concomitant]
     Active Substance: VALPROIC ACID
     Indication: Mood altered
  24. CITALOPRAM [Concomitant]
     Active Substance: CITALOPRAM HYDROBROMIDE
     Indication: Dystonia
     Dosage: 10 MICROGRAM/QHS
     Route: 065
     Dates: start: 202006
  25. CITALOPRAM [Concomitant]
     Active Substance: CITALOPRAM HYDROBROMIDE
     Indication: Mood altered
  26. PINDOLOL [Concomitant]
     Active Substance: PINDOLOL
     Indication: Dystonia
     Dosage: UNK
     Route: 065
  27. LORAZEPAM [Concomitant]
     Active Substance: LORAZEPAM
     Indication: Dystonia
     Dosage: UNK
     Route: 065

REACTIONS (3)
  - Behaviour disorder [Recovering/Resolving]
  - Cerebrospinal fluid leakage [Recovering/Resolving]
  - Drug ineffective [Recovering/Resolving]

NARRATIVE: CASE EVENT DATE: 20181201
